FAERS Safety Report 21936488 (Version 1)
Quarter: 2023Q1

REPORT INFORMATION
  Report Type: Report from Study
  Country: US (occurrence: US)
  Receive Date: 20230201
  Receipt Date: 20230201
  Transmission Date: 20230418
  Serious: No
  Sender: FDA-Public Use
  Company Number: US-INCYTE CORPORATION-2021IN000236

PATIENT

DRUGS (3)
  1. PEMIGATINIB [Suspect]
     Active Substance: PEMIGATINIB
     Indication: Cholangiocarcinoma
     Dosage: UNK
     Route: 065
  2. PEMIGATINIB [Suspect]
     Active Substance: PEMIGATINIB
     Dosage: 9 MILLIGRAM, QD AT NOON WITH FOOD
     Route: 065
     Dates: start: 20210106
  3. ITRACONAZOLE [Interacting]
     Active Substance: ITRACONAZOLE
     Indication: Prophylaxis against transplant rejection
     Route: 065

REACTIONS (10)
  - Nervousness [Unknown]
  - Drug interaction [Unknown]
  - Taste disorder [Unknown]
  - Glossodynia [Unknown]
  - Tongue disorder [Unknown]
  - Dyspepsia [Unknown]
  - Gastrooesophageal reflux disease [Unknown]
  - Insomnia [Unknown]
  - Fatigue [Unknown]
  - Constipation [Not Recovered/Not Resolved]
